FAERS Safety Report 4263713-0 (Version None)
Quarter: 2004Q1

REPORT INFORMATION
  Report Type: 
  Country: None (occurrence: None)
  Receive Date: 20040102
  Receipt Date: 20031218
  Transmission Date: 20041129
  Serious: Yes (Hospitalization, Other)
  Sender: FDA-Public Use
  Company Number: JP-JNJFOC-20031201566

PATIENT
  Age: 36 Year
  Sex: Male

DRUGS (7)
  1. RISPERDAL [Suspect]
     Indication: OBSESSIVE-COMPULSIVE DISORDER
     Dosage: DOSE=1-2 MG; 4 MG, IN 1 DAY, ORAL
     Route: 048
     Dates: start: 20020605, end: 20030909
  2. PAROXETINE HCL [Suspect]
     Indication: OBSESSIVE-COMPULSIVE DISORDER
     Dosage: ORAL; SEE IMAGE
     Route: 048
  3. VEGETAMIN-B (TABLETS) VEGETAMIN A [Concomitant]
  4. DIAZEPAM (UNSPECIFIED) DIAZEPAM [Concomitant]
  5. BIPERIDEN HYDROCHLORIDE [Concomitant]
  6. LACTATED RINGER'S SOLUTION (RINGER ^MERCK^) SOLUTION [Concomitant]
  7. COLD MEDICINE (COLD CAPSULES) TABLETS [Concomitant]

REACTIONS (15)
  - ASTHENIA [None]
  - BLOOD CREATINE PHOSPHOKINASE INCREASED [None]
  - CONDITION AGGRAVATED [None]
  - DIZZINESS [None]
  - GAIT DISTURBANCE [None]
  - HYPOAESTHESIA [None]
  - IRRITABILITY [None]
  - MALAISE [None]
  - MYOCLONUS [None]
  - OBSESSIVE-COMPULSIVE DISORDER [None]
  - PHARYNGOLARYNGEAL PAIN [None]
  - PYREXIA [None]
  - SEROTONIN SYNDROME [None]
  - UPPER RESPIRATORY TRACT INFECTION [None]
  - URINARY INCONTINENCE [None]
